FAERS Safety Report 5799116-7 (Version None)
Quarter: 2008Q3

REPORT INFORMATION
  Report Type: 
  Country: None (occurrence: None)
  Receive Date: 20080701
  Receipt Date: 20080625
  Transmission Date: 20090109
  Serious: Yes (Hospitalization)
  Sender: FDA-Public Use
  Company Number: WWISSUE-195

PATIENT

DRUGS (6)
  1. CEFAZOLIN [Suspect]
     Indication: RENAL FAILURE CHRONIC
     Dosage: 1GM/IV
     Route: 042
     Dates: start: 20080529
  2. ALBUTEROL [Concomitant]
  3. OXYGEN [Concomitant]
  4. ZOFRAN [Concomitant]
  5. SULOMEDROL [Concomitant]
  6. DIPHENHYDRAMINE HCL [Concomitant]

REACTIONS (3)
  - BLOOD PRESSURE DECREASED [None]
  - HYPOXIA [None]
  - NAUSEA [None]
